FAERS Safety Report 20302545 (Version 1)
Quarter: 2022Q1

REPORT INFORMATION
  Report Type: Other
  Country: CN (occurrence: None)
  Receive Date: 20220106
  Receipt Date: 20220106
  Transmission Date: 20220423
  Serious: Yes (Other)
  Sender: FDA-Public Use
  Company Number: CN-ROCHE-2994305

PATIENT

DRUGS (3)
  1. RITUXIMAB [Suspect]
     Active Substance: RITUXIMAB
     Indication: Non-Hodgkin^s lymphoma
     Route: 065
  2. DEXAMETHASONE [Concomitant]
     Active Substance: DEXAMETHASONE
     Indication: Product used for unknown indication
     Route: 042
  3. PROMETHAZINE [Concomitant]
     Active Substance: PROMETHAZINE HYDROCHLORIDE
     Indication: Product used for unknown indication
     Route: 030

REACTIONS (10)
  - Hepatic function abnormal [Unknown]
  - Renal impairment [Unknown]
  - Nausea [Unknown]
  - Vomiting [Unknown]
  - Hypotension [Unknown]
  - Hypertension [Unknown]
  - Rash [Unknown]
  - Haematotoxicity [Unknown]
  - Phlebitis [Unknown]
  - Infection [Unknown]
